FAERS Safety Report 6232117-3 (Version None)
Quarter: 2009Q2

REPORT INFORMATION
  Report Type: 
  Country: None (occurrence: None)
  Receive Date: 20090617
  Receipt Date: 20071109
  Transmission Date: 20091009
  Serious: Yes (Hospitalization, Other)
  Sender: FDA-Public Use
  Company Number: US-ASTRAZENECA-2007UW01935

PATIENT
  Age: 10444 Day
  Sex: Female
  Weight: 84.4 kg

DRUGS (50)
  1. SEROQUEL [Suspect]
     Indication: SCHIZOAFFECTIVE DISORDER
     Dosage: 100 MG TO 300 MG
     Route: 048
     Dates: start: 20030814, end: 20060712
  2. SEROQUEL [Suspect]
     Route: 048
     Dates: start: 20031201, end: 20040401
  3. SEROQUEL [Suspect]
     Route: 048
     Dates: start: 20040401, end: 20060701
  4. SEROQUEL [Suspect]
     Route: 048
     Dates: start: 20060405
  5. RISPERDAL [Concomitant]
     Dates: start: 19990705
  6. RISPERDAL [Concomitant]
     Dates: start: 20000619
  7. RISPERDAL [Concomitant]
     Dates: start: 20061018
  8. ABILIFY [Concomitant]
     Dates: start: 20030606
  9. ABILIFY [Concomitant]
     Dates: start: 20050902
  10. ACCUPRIL [Concomitant]
     Dates: start: 20010117
  11. CLOTRIMAZOLE [Concomitant]
     Dates: start: 20041104
  12. GLUCOTROL XL [Concomitant]
     Dates: start: 20010307
  13. GLYBURIDE [Concomitant]
     Dates: start: 20001110, end: 20001211
  14. LIPITOR [Concomitant]
     Dates: start: 20060405
  15. LAMICTAL [Concomitant]
  16. LORAZEPAM [Concomitant]
     Dates: start: 19990705
  17. MEDROXYPROGESTERONE [Concomitant]
  18. NOVOLOG [Concomitant]
     Dates: start: 20041104
  19. PROMETHAZINE [Concomitant]
  20. PAXIL [Concomitant]
     Dates: start: 19990705
  21. PAXIL [Concomitant]
     Dates: start: 20030604
  22. PAXIL [Concomitant]
     Dates: start: 20030814
  23. PAXIL [Concomitant]
     Dates: start: 20030913
  24. PROZAC [Concomitant]
  25. NEOMYCIN [Concomitant]
     Dates: start: 20050203
  26. PAROXETINE HCL [Concomitant]
     Dates: start: 20050408
  27. ASPIRIN [Concomitant]
     Dates: start: 20050526
  28. LESCOL [Concomitant]
     Dates: start: 20051006
  29. KETOCONAZOLE [Concomitant]
     Dates: start: 20040403
  30. HUMULIN R [Concomitant]
     Dates: start: 20060605
  31. FLUOXETINE HCL [Concomitant]
     Dates: start: 20060125
  32. PREVACID [Concomitant]
     Dates: start: 20060330
  33. ECONAZOLE NITRATE [Concomitant]
     Dates: start: 20060530
  34. BETAMETHASONE [Concomitant]
     Dates: start: 20060613
  35. CIPROFLOXACIN [Concomitant]
     Dates: start: 20060714
  36. DEPAKOTE [Concomitant]
     Dates: start: 20060723
  37. PRILOSEC [Concomitant]
     Dates: start: 20060815
  38. LYRICA [Concomitant]
     Dates: start: 20060914
  39. METOPROLOL SUCCINATE [Concomitant]
     Dates: start: 20061016
  40. VYTORIN [Concomitant]
     Dates: start: 20061016
  41. AVANDIA [Concomitant]
     Dosage: 2 MG - 8 MG
     Route: 048
     Dates: start: 20010117
  42. AVANDIA [Concomitant]
     Dates: start: 20010515, end: 20060914
  43. BIAXIN [Concomitant]
  44. BIAXIN [Concomitant]
     Dates: start: 20040112
  45. GLUCOPHAGE [Concomitant]
     Dosage: 500 MG BID, 500 MG 4 QHS, 800 MG
     Dates: start: 20001211
  46. GLUCOPHAGE [Concomitant]
     Dates: start: 20001211
  47. GLIPIZIDE [Concomitant]
     Dates: start: 20031016
  48. INSULIN [Concomitant]
     Dosage: 40 UNITS TWICE A DAY
     Dates: start: 20051028
  49. NAPROXEN [Concomitant]
     Dates: start: 20031016
  50. NAPROXEN [Concomitant]
     Dates: start: 20030516

REACTIONS (18)
  - ARTHRITIS [None]
  - BLOOD CHOLESTEROL INCREASED [None]
  - CEREBROVASCULAR ACCIDENT [None]
  - CONVULSION [None]
  - DIABETES MELLITUS INADEQUATE CONTROL [None]
  - DIABETIC NEUROPATHY [None]
  - DYSPNOEA [None]
  - HAEMATOCHEZIA [None]
  - HYPERCALCAEMIA [None]
  - HYPERLIPIDAEMIA [None]
  - HYPERTENSION [None]
  - MENSTRUAL DISORDER [None]
  - OSTEOPOROSIS [None]
  - PALPITATIONS [None]
  - RASH GENERALISED [None]
  - TACHYCARDIA [None]
  - TRANSIENT ISCHAEMIC ATTACK [None]
  - TYPE 2 DIABETES MELLITUS [None]
